FAERS Safety Report 5144419-2 (Version None)
Quarter: 2006Q4

REPORT INFORMATION
  Report Type: 
  Country: None (occurrence: None)
  Receive Date: 20061106
  Receipt Date: 20060717
  Transmission Date: 20070319
  Serious: Yes (Life-Threatening, Hospitalization, Other)
  Sender: FDA-Public Use
  Company Number: US-GILEAD-2006-0009877

PATIENT
  Sex: Male
  Weight: 59.928 kg

DRUGS (6)
  1. TRUVADA [Suspect]
     Indication: HIV INFECTION
     Route: 048
     Dates: start: 20050715, end: 20060614
  2. SUSTIVA [Concomitant]
     Indication: HIV INFECTION
     Route: 048
     Dates: start: 20010101
  3. WELLBUTRIN SR [Concomitant]
     Indication: DEPRESSION
     Route: 048
     Dates: start: 20051001
  4. ALLEGRA [Concomitant]
     Indication: HYPERSENSITIVITY
     Route: 048
     Dates: start: 20030201
  5. ASPIRIN [Concomitant]
     Route: 048
  6. TRAZODONE HCL [Concomitant]
     Route: 048

REACTIONS (3)
  - DEHYDRATION [None]
  - PNEUMONIA [None]
  - RENAL FAILURE ACUTE [None]
